FAERS Safety Report 6673737-1 (Version None)
Quarter: 2010Q2

REPORT INFORMATION
  Report Type: 
  Country: None (occurrence: None)
  Receive Date: 20100408
  Receipt Date: 20100331
  Transmission Date: 20101027
  Serious: Yes (Hospitalization, Other)
  Sender: FDA-Public Use
  Company Number: DE-MERCK-1004DEU00001

PATIENT
  Age: 57 Year
  Sex: Male

DRUGS (2)
  1. JANUMET [Suspect]
     Indication: DIABETES MELLITUS
     Route: 048
     Dates: start: 20090422, end: 20090101
  2. JANUMET [Suspect]
     Route: 048
     Dates: start: 20090101, end: 20091101

REACTIONS (3)
  - BLOOD TRIGLYCERIDES INCREASED [None]
  - LIPASE INCREASED [None]
  - PANCREATITIS [None]
